FAERS Safety Report 8778925 (Version 1)
Quarter: 2012Q4

REPORT INFORMATION
  Report Type: 
  Country: US (occurrence: US)
  Receive Date: 20120907
  Receipt Date: 20120907
  Transmission Date: 20130627
  Serious: Yes (Life-Threatening)
  Sender: FDA-Public Use
  Company Number: US-ELI_LILLY_AND_COMPANY-US201209000847

PATIENT
  Age: 85 Year
  Sex: Female

DRUGS (2)
  1. CYMBALTA [Suspect]
     Indication: BACK PAIN
     Dosage: 30mg, daily
     Dates: start: 201207
  2. CYMBALTA [Suspect]
     Dosage: 30mg, twice per day

REACTIONS (3)
  - Blood potassium decreased [Unknown]
  - Diarrhoea [Unknown]
  - Off label use [Unknown]
